FAERS Safety Report 5174407-1 (Version None)
Quarter: 2006Q4

REPORT INFORMATION
  Report Type: 
  Country: None (occurrence: None)
  Receive Date: 20061214
  Receipt Date: 20061106
  Transmission Date: 20070319
  Serious: Yes (Death, Other)
  Sender: FDA-Public Use
  Company Number: JP-SANOFI-SYNTHELABO-A01200609579

PATIENT
  Sex: Male

DRUGS (3)
  1. LEUCOVORIN CALCIUM [Concomitant]
     Dosage: 275MG/M2 AS INFUSION
     Route: 042
  2. FLUOROURACIL [Suspect]
     Dosage: 550 MG/BODY BOLUS THEN 3400 MG/BODY INFUSION D1-2
     Route: 042
  3. OXALIPLATIN [Suspect]
     Dosage: 140 MG/BODY
     Route: 042

REACTIONS (2)
  - INTERSTITIAL LUNG DISEASE [None]
  - NEUTROPENIA [None]
